FAERS Safety Report 9903657 (Version 2)
Quarter: 2014Q1

REPORT INFORMATION
  Report Type: Spontaneous
  Country: US (occurrence: US)
  Receive Date: 20140217
  Receipt Date: 20140313
  Transmission Date: 20141002
  Serious: Yes (Disabling, Other)
  Sender: FDA-Public Use
  Company Number: US-RB-063457-14

PATIENT
  Age: 61 Year
  Sex: Male

DRUGS (10)
  1. SUBOXONE TABLET [Suspect]
     Route: 060
     Dates: start: 2012
  2. SUBOXONE TABLET [Suspect]
     Route: 060
  3. SUBOXONE TABLET [Suspect]
     Route: 060
  4. SUBOXONE TABLET [Suspect]
     Indication: DRUG DEPENDENCE
     Route: 060
     Dates: end: 2013
  5. SUBOXONE FILM [Suspect]
     Indication: DRUG DEPENDENCE
     Dosage: SUBOXONE FILM
     Route: 060
     Dates: start: 2013, end: 201307
  6. ATIVAN [Concomitant]
     Indication: INSOMNIA
     Dosage: DAILY
     Route: 048
  7. VALIUM [Concomitant]
     Indication: INSOMNIA
     Dosage: DAILY
     Route: 048
  8. CELEBREX [Concomitant]
     Indication: CORONARY ARTERY DISEASE
     Dosage: DAILY
     Route: 048
  9. ASPIRIN [Concomitant]
     Indication: CARDIOVASCULAR EVENT PROPHYLAXIS
     Route: 048
  10. MULTIVITAMINS [Concomitant]
     Indication: SUPPLEMENTATION THERAPY
     Dosage: DOSING DETAILS UNKNOWN
     Route: 048

REACTIONS (2)
  - Fall [Recovered/Resolved]
  - Lower limb fracture [Recovered/Resolved]
